FAERS Safety Report 4647194-0 (Version None)
Quarter: 2005Q2

REPORT INFORMATION
  Report Type: 
  Country: None (occurrence: None)
  Receive Date: 20050425
  Receipt Date: 20050413
  Transmission Date: 20051028
  Serious: Yes (Hospitalization, Disabling, Other)
  Sender: FDA-Public Use
  Company Number: 2005-03-0617

PATIENT
  Age: 56 Year
  Sex: Male
  Weight: 67.1324 kg

DRUGS (5)
  1. PEG-INTRON [Suspect]
     Indication: HEPATITIS C
     Dosage: 96 MCG QW SUBCUTANEOUS
     Route: 058
     Dates: start: 20041026
  2. REBETOL [Suspect]
     Indication: HEPATITIS C
     Dosage: 1000 MG ORAL
     Route: 048
     Dates: start: 20041026
  3. LISINOPRIL [Concomitant]
  4. ZOLOFT [Concomitant]
  5. CODEINE [Concomitant]

REACTIONS (5)
  - BLINDNESS UNILATERAL [None]
  - ENDOPHTHALMITIS [None]
  - EYE INFECTION STAPHYLOCOCCAL [None]
  - EYE PAIN [None]
  - PHOTOPHOBIA [None]
